FAERS Safety Report 8829674 (Version 1)
Quarter: 2012Q4

REPORT INFORMATION
  Report Type: 
  Country: US (occurrence: US)
  Receive Date: 20121008
  Receipt Date: 20121008
  Transmission Date: 20130627
  Serious: No
  Sender: FDA-Public Use
  Company Number: US-TEVA-302330USA

PATIENT
  Sex: Female
  Weight: 11.2 kg

DRUGS (6)
  1. QVAR [Suspect]
     Indication: ASTHMA
     Dosage: BID
     Dates: start: 20110511
  2. BUDESONIDE [Suspect]
     Indication: ASTHMA
  3. ZOPIDEX [Concomitant]
  4. MONTELUKAST [Concomitant]
  5. LANSOPRAZOLE [Concomitant]
  6. COMBIVENT [Concomitant]

REACTIONS (1)
  - Candidiasis [Not Recovered/Not Resolved]
